FAERS Safety Report 15376939 (Version 1)
Quarter: 2018Q3

REPORT INFORMATION
  Report Type: Report from Study
  Country: JP (occurrence: JP)
  Receive Date: 20180913
  Receipt Date: 20180913
  Transmission Date: 20181010
  Serious: Yes (Hospitalization)
  Sender: FDA-Public Use
  Company Number: JP-TEVA-2018-JP-954168

PATIENT
  Age: 64 Year
  Sex: Male

DRUGS (2)
  1. PACLITAXEL. [Suspect]
     Active Substance: PACLITAXEL
     Indication: LUNG ADENOCARCINOMA
     Dosage: 200 MG/ME2 EVERY THREE WEEKS
     Route: 065
  2. CARBOPLATIN. [Suspect]
     Active Substance: CARBOPLATIN
     Indication: LUNG ADENOCARCINOMA
     Dosage: AUC 5, IN EVERY 3 WEEKS
     Route: 065

REACTIONS (5)
  - Pneumatosis [Unknown]
  - Fungal disease carrier [Recovering/Resolving]
  - Gastritis bacterial [Recovering/Resolving]
  - Haematemesis [Recovering/Resolving]
  - Abscess [Unknown]
